FAERS Safety Report 13839543 (Version 1)
Quarter: 2017Q3

REPORT INFORMATION
  Report Type: Spontaneous
  Country: US (occurrence: US)
  Receive Date: 20170805
  Receipt Date: 20170805
  Transmission Date: 20171127
  Serious: No
  Sender: FDA-Public Use
  Company Number: None

PATIENT
  Age: 56 Year
  Sex: Male

DRUGS (19)
  1. TRAMADOL. [Concomitant]
     Active Substance: TRAMADOL
  2. LANSOPRAZOLE. [Concomitant]
     Active Substance: LANSOPRAZOLE
  3. MULTIVITAMIN [Concomitant]
     Active Substance: VITAMINS
  4. SERTRALINE [Concomitant]
     Active Substance: SERTRALINE HYDROCHLORIDE
  5. MAGNESIUM SULFATE. [Concomitant]
     Active Substance: MAGNESIUM SULFATE
  6. VANCOMYCIN [Concomitant]
     Active Substance: VANCOMYCIN
  7. MIRTAZAPINE. [Concomitant]
     Active Substance: MIRTAZAPINE
  8. SIROLIMUS. [Suspect]
     Active Substance: SIROLIMUS
     Indication: IMMUNOSUPPRESSION
     Route: 048
     Dates: end: 20170117
  9. CALCIUM CARBONATE. [Concomitant]
     Active Substance: CALCIUM CARBONATE
  10. CHOLECALCIFEROL [Concomitant]
     Active Substance: CHOLECALCIFEROL
  11. HEPARIN [Concomitant]
     Active Substance: HEPARIN SODIUM
  12. MEROPENEM. [Concomitant]
     Active Substance: MEROPENEM
  13. METRONIDAZOLE. [Concomitant]
     Active Substance: METRONIDAZOLE
  14. OXYCODONE [Concomitant]
     Active Substance: OXYCODONE
  15. HYDROMORPHONE [Concomitant]
     Active Substance: HYDROMORPHONE
  16. INSULIN ASPART [Concomitant]
     Active Substance: INSULIN ASPART
  17. URSODIAL [Concomitant]
  18. FLUCONAZOLE. [Concomitant]
     Active Substance: FLUCONAZOLE
  19. INSULIN GLARGINE [Concomitant]
     Active Substance: INSULIN GLARGINE

REACTIONS (3)
  - Hypertriglyceridaemia [None]
  - Liver abscess [None]
  - Blood cholesterol increased [None]

NARRATIVE: CASE EVENT DATE: 20170116
